FAERS Safety Report 8771318 (Version 1)
Quarter: 2012Q4

REPORT INFORMATION
  Report Type: 
  Country: BR (occurrence: BR)
  Receive Date: 20120906
  Receipt Date: 20120906
  Transmission Date: 20130627
  Serious: Yes (Hospitalization, Other)
  Sender: FDA-Public Use
  Company Number: PHHY2012BR076267

PATIENT
  Sex: Female

DRUGS (11)
  1. FORASEQ [Suspect]
     Indication: CHRONIC OBSTRUCTIVE PULMONARY DISEASE
     Dosage: UNK UKN, BID
  2. LOSARTAN [Concomitant]
     Indication: HYPERTENSION
     Dosage: 2 DF, UNK
     Route: 048
  3. PANTOPRAZOLE [Concomitant]
     Indication: GASTROINTESTINAL DISORDER
     Dosage: 2 DF, UNK
     Route: 048
  4. ROIPNOL [Concomitant]
     Indication: SEDATIVE THERAPY
     Dosage: 1 DF, UNK
     Route: 048
  5. CLOPIDOGREL BISULFATE [Concomitant]
     Indication: CARDIAC DISORDER
     Dosage: 1 DF, UNK
     Route: 048
  6. NAC [Concomitant]
     Indication: LUNG DISORDER
  7. DOMPERIDONE [Concomitant]
     Indication: APPETITE DISORDER
     Dosage: 2 DF, UNK
     Route: 048
  8. DOMPERIDONE [Concomitant]
     Indication: PROPHYLAXIS
  9. SUSTRATE [Concomitant]
     Dosage: 3 DF, UNK
     Route: 060
  10. MINERVIT PLUS [Concomitant]
  11. FERROUS SULFATE [Concomitant]
     Indication: ANAEMIA
     Route: 048

REACTIONS (5)
  - Chronic obstructive pulmonary disease [Not Recovered/Not Resolved]
  - Osteoporosis [Not Recovered/Not Resolved]
  - Carotid artery occlusion [Not Recovered/Not Resolved]
  - Depression [Not Recovered/Not Resolved]
  - Bedridden [None]
